FAERS Safety Report 22942162 (Version 4)
Quarter: 2024Q2

REPORT INFORMATION
  Report Type: Other
  Country: US (occurrence: None)
  Receive Date: 20230914
  Receipt Date: 20240429
  Transmission Date: 20240715
  Serious: Yes (Hospitalization)
  Sender: FDA-Public Use
  Company Number: US-ROCHE-3420855

PATIENT
  Age: 64 Year
  Sex: Male
  Weight: 78.996 kg

DRUGS (7)
  1. RITUXAN [Suspect]
     Active Substance: RITUXIMAB
     Indication: Nephritic syndrome
     Dosage: 50ML (VIAL), 1000MG INTRAVENOUSLY FOR 2 DOSES 14 DAYS APART AS DIRECTED
     Route: 041
  2. RITUXAN [Suspect]
     Active Substance: RITUXIMAB
     Indication: Glomerulonephritis membranoproliferative
     Dosage: INFUSE 1000MG INTRAVENOUSLY ON DAY(S) 0 AND DAY(S) 14 FOR 2 DOSES ONLY-DO NOT REPEAT COURSE
     Route: 041
  3. RITUXAN [Suspect]
     Active Substance: RITUXIMAB
     Indication: Cryoglobulinaemia
  4. RITUXAN [Suspect]
     Active Substance: RITUXIMAB
     Indication: Cardiovascular disorder
  5. RITUXAN [Suspect]
     Active Substance: RITUXIMAB
     Indication: Glomerulonephritis
  6. RITUXAN [Suspect]
     Active Substance: RITUXIMAB
     Indication: Immunoglobulins abnormal
  7. RITUXAN [Suspect]
     Active Substance: RITUXIMAB
     Indication: Peripheral ischaemia

REACTIONS (2)
  - Vasculitis [Unknown]
  - Off label use [Unknown]
